FAERS Safety Report 7385791-2 (Version None)
Quarter: 2011Q1

REPORT INFORMATION
  Report Type: 
  Country: None (occurrence: None)
  Receive Date: 20110331
  Receipt Date: 20110318
  Transmission Date: 20110831
  Serious: Yes (Other)
  Sender: FDA-Public Use
  Company Number: US-JNJFOC-20110309967

PATIENT
  Sex: Female
  Weight: 81.65 kg

DRUGS (1)
  1. LEVAQUIN [Suspect]
     Indication: INFECTION PROPHYLAXIS
     Route: 048

REACTIONS (8)
  - SUICIDAL IDEATION [None]
  - INSOMNIA [None]
  - PAIN [None]
  - MUSCLE TWITCHING [None]
  - PALPITATIONS [None]
  - ERYTHEMA [None]
  - FEELING ABNORMAL [None]
  - TREMOR [None]
